FAERS Safety Report 7794328 (Version 5)
Quarter: 2013Q1

REPORT INFORMATION
  Report Type: Spontaneous
  Country: US (occurrence: None)
  Receive Date: 20110113
  Receipt Date: 20121108
  Transmission Date: 20140127
  Serious: Yes (Hospitalization, Disabling, Other)
  Sender: FDA-Public Use
  Company Number: 2011MA000171

PATIENT
  Age: 53 Year
  Sex: Male
  Weight: 93.44 kg

DRUGS (103)
  1. METOCLOPRAMIDE [Suspect]
     Indication: IMPAIRED GASTRIC EMPTYING
     Dosage: 10 MG; QUID;PO
     Route: 048
     Dates: start: 19990523, end: 20091201
  2. LIPITOR [Concomitant]
  3. NEXIUM [Concomitant]
  4. VALIUM [Concomitant]
  5. DEPAKOTE [Concomitant]
  6. KLONOPIN [Concomitant]
  7. CLARINEX [Concomitant]
  8. LOTENSIN [Concomitant]
  9. ELAVIL [Concomitant]
  10. PANLOR-DC [Concomitant]
  11. NITOBID [Concomitant]
  12. PROZAC [Concomitant]
  13. INSULIN [Concomitant]
  14. MAXAIR [Concomitant]
  15. AZMACORT [Concomitant]
  16. LORCET [Concomitant]
  17. NEXIUM [Concomitant]
  18. MS CONTIN [Concomitant]
  19. ASPIRIN PLUS [Concomitant]
  20. AMLODIPINE [Concomitant]
  21. PHENERGAN [Concomitant]
  22. LIPITOR [Concomitant]
  23. DIAZEPAM [Concomitant]
  24. COREG [Concomitant]
  25. PROMETHAZINE [Concomitant]
  26. PLAVIX [Concomitant]
  27. ADVAIR HFA [Concomitant]
  28. ALBUTEROL [Concomitant]
  29. HYDROCODONE [Concomitant]
  30. BENAZEPRIL [Concomitant]
  31. CIPROFLOXACIN [Concomitant]
  32. FLOMAX [Concomitant]
  33. OMEPRAZOLE [Concomitant]
  34. TRAZODONE [Concomitant]
  35. VESICARE [Concomitant]
  36. FUROSEMIDE [Concomitant]
  37. LOVASTATIN [Concomitant]
  38. GABAPENTIN [Concomitant]
  39. CRESTOR [Concomitant]
  40. XOPENEX [Concomitant]
  41. ERYTHROMYCIN [Concomitant]
  42. ZOLPIDEM [Concomitant]
  43. BENADRYL [Concomitant]
  44. AMBIEN [Concomitant]
  45. AMLODIPINE/BENAZEPRIL [Concomitant]
  46. APAP W/CODEINE [Concomitant]
  47. AZITHROMYCIN [Concomitant]
  48. BUSPAR [Concomitant]
  49. CELEBREX [Concomitant]
  50. CEPHALEXIN [Concomitant]
  51. CORTISONE [Concomitant]
  52. DETROL [Concomitant]
  53. DIAZEPAM [Concomitant]
  54. DILANTIN [Concomitant]
  55. DOXYCYCLINE [Concomitant]
  56. DURAGESIC [Concomitant]
  57. EFFEXOR [Concomitant]
  58. EXPECTUSS [Concomitant]
  59. FLEXERIL [Concomitant]
  60. FLUOXETINE [Concomitant]
  61. GLYBURIDE [Concomitant]
  62. HC TUSSIVE [Concomitant]
  63. HISTINEX [Concomitant]
  64. HYDROCODONE W/APAP [Concomitant]
  65. HYDROXYZINE [Concomitant]
  66. IBUPROFEN [Concomitant]
  67. HUMULIN [Concomitant]
  68. ISOSORBIDE [Concomitant]
  69. KETOCONAZOLE [Concomitant]
  70. LANOXIN [Concomitant]
  71. LEVAQUIN [Concomitant]
  72. LEVEMIR [Concomitant]
  73. LISINOPRIL [Concomitant]
  74. LOMOTIL [Concomitant]
  75. LORATADINE [Concomitant]
  76. LORTAB [Concomitant]
  77. MACROBID [Concomitant]
  78. MECLIZINE [Concomitant]
  79. MEDROL [Concomitant]
  80. METHYLPREDNISOLONE [Concomitant]
  81. NAPROXEN [Concomitant]
  82. NASONEX [Concomitant]
  83. NITROFURANTOIN [Concomitant]
  84. NITROGLYCERIN [Concomitant]
  85. NORVASC [Concomitant]
  86. NOVOLOG [Concomitant]
  87. PLAVIX [Concomitant]
  88. PREDNISONE [Concomitant]
  89. PROAIR [Concomitant]
  90. PROCRIT [Concomitant]
  91. PULMICORT [Concomitant]
  92. RANITIDINE [Concomitant]
  93. REMERON [Concomitant]
  94. SIMVASTATIN [Concomitant]
  95. SOMA [Concomitant]
  96. SULFAMETHOXAZOLE/TRIMETHOPRIM [Concomitant]
  97. TORADOL [Concomitant]
  98. TYLENOL #4 [Concomitant]
  99. ULTA [Concomitant]
  100. VICODIN [Concomitant]
  101. XLIENE [Concomitant]
  102. ZITHROMAX [Concomitant]
  103. ZYRTEC [Concomitant]

REACTIONS (48)
  - Tardive dyskinesia [None]
  - Extrapyramidal disorder [None]
  - Economic problem [None]
  - Emotional disorder [None]
  - Injury [None]
  - Anxiety [None]
  - Pain [None]
  - Protrusion tongue [None]
  - Grimacing [None]
  - Excessive eye blinking [None]
  - Restless legs syndrome [None]
  - Dysphonia [None]
  - Major depression [None]
  - Diabetes mellitus inadequate control [None]
  - Treatment noncompliance [None]
  - Peripheral arterial occlusive disease [None]
  - Subcutaneous abscess [None]
  - Prostatitis [None]
  - Dyspnoea [None]
  - Dysarthria [None]
  - Tremor [None]
  - Dysaesthesia [None]
  - Akathisia [None]
  - Gastritis [None]
  - Drug withdrawal syndrome [None]
  - Convulsion [None]
  - Drug diversion [None]
  - Memory impairment [None]
  - Homicide [None]
  - Coordination abnormal [None]
  - Balance disorder [None]
  - Haematochezia [None]
  - Constipation [None]
  - Rectal haemorrhage [None]
  - Diverticulum intestinal [None]
  - Haemorrhoids [None]
  - Night sweats [None]
  - Diastolic dysfunction [None]
  - Vomiting [None]
  - Diarrhoea [None]
  - Dizziness [None]
  - Headache [None]
  - Dysphagia [None]
  - Flushing [None]
  - Oesophagitis [None]
  - Dyspnoea paroxysmal nocturnal [None]
  - Intervertebral disc protrusion [None]
  - Spinal osteoarthritis [None]
